FAERS Safety Report 4370639-0 (Version None)
Quarter: 2004Q2

REPORT INFORMATION
  Report Type: 
  Country: None (occurrence: None)
  Receive Date: 20040525
  Receipt Date: 20040513
  Transmission Date: 20050107
  Serious: Yes (Hospitalization)
  Sender: FDA-Public Use
  Company Number: GB-JNJFOC-20040503082

PATIENT
  Age: 52 Year
  Sex: Male
  Weight: 58 kg

DRUGS (11)
  1. SPORANOX [Suspect]
     Indication: ASPERGILLOSIS
     Dosage: 200 MG, 1 IN 1 DAY, ORAL
     Route: 048
     Dates: start: 20040309, end: 20040423
  2. ASPIRIN [Concomitant]
  3. VALGANCICLOVIR (VALGANCICLOVIR) [Concomitant]
  4. LANSOPRAZOLE [Concomitant]
  5. SOTALOL HCL [Concomitant]
  6. RAMIPRIL [Concomitant]
  7. INSULIN [Concomitant]
  8. PROGRAF [Concomitant]
  9. AZATHIOPRINE [Concomitant]
  10. PREDNISOLONE [Concomitant]
  11. PRAVASTATIN [Concomitant]

REACTIONS (1)
  - BLOOD ALKALINE PHOSPHATASE INCREASED [None]
